FAERS Safety Report 4877641-0 (Version None)
Quarter: 2006Q1

REPORT INFORMATION
  Report Type: 
  Country: None (occurrence: None)
  Receive Date: 20060109
  Receipt Date: 20051228
  Transmission Date: 20060701
  Serious: Yes (Other)
  Sender: FDA-Public Use
  Company Number: 2006000757

PATIENT
  Age: 62 Year
  Sex: Male

DRUGS (3)
  1. QUINAPRIL HCL [Suspect]
     Indication: HYPERTENSION
     Dosage: 20 MG (20 MG, 1 IN 1 D), ORAL
     Route: 048
     Dates: start: 20051101, end: 20051101
  2. ISOSORBIDE DINITRATE [Concomitant]
  3. ATENOLOL [Concomitant]

REACTIONS (2)
  - ANGIONEUROTIC OEDEMA [None]
  - DRUG PRESCRIBING ERROR [None]
